FAERS Safety Report 8833757 (Version 1)
Quarter: 2012Q4

REPORT INFORMATION
  Report Type: 
  Country: US (occurrence: US)
  Receive Date: 20121010
  Receipt Date: 20121010
  Transmission Date: 20130627
  Serious: Yes (Other)
  Sender: FDA-Public Use
  Company Number: US-SANOFI-AVENTIS-2012SA072026

PATIENT
  Age: 60 Year
  Sex: Female

DRUGS (2)
  1. LANTUS SOLOSTAR [Suspect]
     Indication: DIABETES
     Dosage: Dose:50 unit(s)
     Route: 058
  2. SOLOSTAR [Suspect]
     Indication: DIABETES

REACTIONS (2)
  - Ankle fracture [Not Recovered/Not Resolved]
  - Muscle spasms [Not Recovered/Not Resolved]
